FAERS Safety Report 20150012 (Version 4)
Quarter: 2023Q2

REPORT INFORMATION
  Report Type: Report from Study
  Country: US (occurrence: US)
  Receive Date: 20211206
  Receipt Date: 20230512
  Transmission Date: 20230721
  Serious: No
  Sender: FDA-Public Use
  Company Number: US-NOVARTISTESTPH-NVSC2021US278037

PATIENT
  Sex: Male
  Weight: 54.43 kg

DRUGS (3)
  1. COSENTYX [Suspect]
     Active Substance: SECUKINUMAB
     Indication: Psoriasis
     Dosage: 125 MG, QW FOR 5 WEEKS, THEN ONCE EVERY 4 WEEKS
     Route: 058
     Dates: start: 20210910
  2. COSENTYX [Suspect]
     Active Substance: SECUKINUMAB
     Dosage: 125 MG, Q4W
     Route: 058
  3. COSENTYX [Suspect]
     Active Substance: SECUKINUMAB
     Dosage: 150MG,ONCE WEEKLY FOR 5 WEEK ND THEN 4 WEEKS
     Route: 058

REACTIONS (4)
  - Psoriasis [Unknown]
  - Product use issue [Unknown]
  - Drug ineffective [Unknown]
  - Staphylococcal infection [Unknown]
